FAERS Safety Report 8271882-0 (Version None)
Quarter: 2012Q1

REPORT INFORMATION
  Report Type: 
  Country: None (occurrence: None)
  Receive Date: 20120308
  Receipt Date: 20111118
  Transmission Date: 20120608
  Serious: No
  Sender: FDA-Public Use
  Company Number: PHEH2011US009887

PATIENT

DRUGS (1)
  1. FANAPT [Suspect]
     Dosage: 1 MG

REACTIONS (2)
  - DIARRHOEA [None]
  - HYPERHIDROSIS [None]
